FAERS Safety Report 22625758 (Version 1)
Quarter: 2023Q2

REPORT INFORMATION
  Report Type: Spontaneous
  Country: US (occurrence: US)
  Receive Date: 20230621
  Receipt Date: 20230621
  Transmission Date: 20230721
  Serious: No
  Sender: FDA-Public Use
  Company Number: US-TEVA-2023-US-2894888

PATIENT
  Age: 66 Year
  Sex: Male

DRUGS (1)
  1. TAMSULOSIN [Suspect]
     Active Substance: TAMSULOSIN
     Indication: Product used for unknown indication
     Route: 065

REACTIONS (5)
  - Loss of libido [Not Recovered/Not Resolved]
  - Heart valve incompetence [Unknown]
  - Pollakiuria [Unknown]
  - Mood swings [Unknown]
  - Hot flush [Recovering/Resolving]
